FAERS Safety Report 5900651-9 (Version None)
Quarter: 2008Q3

REPORT INFORMATION
  Report Type: 
  Country: None (occurrence: None)
  Receive Date: 20080926
  Receipt Date: 20080916
  Transmission Date: 20090109
  Serious: Yes (Other)
  Sender: FDA-Public Use
  Company Number: AU-PFIZER INC-2008078694

PATIENT
  Sex: Female

DRUGS (2)
  1. LYRICA [Suspect]
  2. DRUG, UNSPECIFIED [Concomitant]

REACTIONS (1)
  - FALL [None]
